FAERS Safety Report 8784470 (Version 2)
Quarter: 2013Q3

REPORT INFORMATION
  Report Type: Spontaneous
  Country: US (occurrence: None)
  Receive Date: 20120827
  Receipt Date: 20130822
  Transmission Date: 20140515
  Serious: Yes (Hospitalization)
  Sender: FDA-Public Use
  Company Number: B0824787A

PATIENT
  Age: 23 Year
  Sex: Male

DRUGS (2)
  1. LAMOTRIGINE [Suspect]
     Indication: PRODUCT USED FOR UNKNOWN INDICATION
     Route: 048
  2. FLUDROCORTISONE [Suspect]
     Indication: PRODUCT USED FOR UNKNOWN INDICATION
     Route: 048

REACTIONS (10)
  - Toxicity to various agents [None]
  - Overdose [None]
  - Tremor [None]
  - Foaming at mouth [None]
  - Agitation [None]
  - Delirium [None]
  - Myoclonus [None]
  - Electrocardiogram QRS complex abnormal [None]
  - Restlessness [None]
  - Lethargy [None]
